FAERS Safety Report 14155818 (Version 2)
Quarter: 2018Q1

REPORT INFORMATION
  Report Type: Report from Study
  Country: None (occurrence: US)
  Receive Date: 20171103
  Receipt Date: 20180205
  Transmission Date: 20180508
  Serious: Yes (Other)
  Sender: FDA-Public Use
  Company Number: US-ABBVIE-17K-163-2002620-00

PATIENT
  Sex: Male

DRUGS (2)
  1. HUMIRA [Suspect]
     Active Substance: ADALIMUMAB
     Indication: CROHN^S DISEASE
     Route: 058
  2. TYLENOL [Concomitant]
     Active Substance: ACETAMINOPHEN
     Indication: NASOPHARYNGITIS

REACTIONS (5)
  - Incisional hernia [Recovering/Resolving]
  - Nasopharyngitis [Recovering/Resolving]
  - Surgery [Not Recovered/Not Resolved]
  - Myalgia [Unknown]
  - Psoriasis [Recovering/Resolving]
